FAERS Safety Report 9014154 (Version 1)
Quarter: 2013Q1

REPORT INFORMATION
  Report Type: Spontaneous
  Country: DE (occurrence: DE)
  Receive Date: 20130115
  Receipt Date: 20130115
  Transmission Date: 20140127
  Serious: Yes (Hospitalization)
  Sender: FDA-Public Use
  Company Number: DE-JNJFOC-20130102376

PATIENT
  Sex: 0

DRUGS (16)
  1. ETOMIDATE [Suspect]
     Indication: GENERAL ANAESTHESIA
     Route: 042
  2. FENTANYL [Suspect]
     Indication: GENERAL ANAESTHESIA
     Route: 062
  3. BENZODIAZEPINE NOS [Suspect]
     Indication: PREMEDICATION
     Route: 065
  4. MIDAZOLAM [Suspect]
     Indication: SEDATIVE THERAPY
     Route: 065
  5. MIDAZOLAM [Suspect]
     Indication: GENERAL ANAESTHESIA
     Route: 065
  6. THIOPENTAL [Suspect]
     Indication: GENERAL ANAESTHESIA
     Route: 065
  7. PROPOFOL [Suspect]
     Indication: GENERAL ANAESTHESIA
     Route: 065
  8. REMIFENTANIL [Suspect]
     Indication: GENERAL ANAESTHESIA
     Route: 065
  9. DESFLURANE [Suspect]
     Indication: ANAESTHESIA
     Route: 055
  10. ISOFLURANE [Suspect]
     Indication: ANAESTHESIA
     Route: 055
  11. SEVOFLURANE [Suspect]
     Indication: ANAESTHESIA
     Route: 055
  12. NITROUS OXIDE [Concomitant]
     Route: 065
  13. OPIOIDS NOS [Concomitant]
     Route: 065
  14. OXYGEN [Concomitant]
     Route: 065
  15. MUSCLE RELAXANT [Concomitant]
     Route: 065
  16. PAIN MEDICATION NOS [Concomitant]
     Indication: PAIN
     Route: 065

REACTIONS (2)
  - Anaesthetic complication neurological [Unknown]
  - Decreased activity [Unknown]
